FAERS Safety Report 9290896 (Version 1)
Quarter: 2013Q2

REPORT INFORMATION
  Report Type: Spontaneous
  Country: BR (occurrence: BR)
  Receive Date: 20130515
  Receipt Date: 20130515
  Transmission Date: 20140414
  Serious: Yes (Other)
  Sender: FDA-Public Use
  Company Number: PHHY2013BR047859

PATIENT
  Age: 6 Year
  Sex: Male
  Weight: 27 kg

DRUGS (4)
  1. RITALINA [Suspect]
     Indication: ATTENTION DEFICIT/HYPERACTIVITY DISORDER
     Dosage: 10 MG, A DAY
     Route: 048
     Dates: start: 201211
  2. CARBAMAZEPINE [Suspect]
     Indication: BIPOLAR DISORDER
     Dosage: 200 MG
     Route: 065
  3. SERTRALINE [Concomitant]
     Indication: ANXIETY
     Dosage: 0.5 DF, A DAY
     Route: 048
     Dates: start: 201211
  4. IMIPRAMINE [Concomitant]
     Indication: HEADACHE
     Dosage: 2 DF, A DAY
     Route: 048

REACTIONS (7)
  - Bipolar disorder [Not Recovered/Not Resolved]
  - Aggression [Not Recovered/Not Resolved]
  - Attention deficit/hyperactivity disorder [Not Recovered/Not Resolved]
  - Psychomotor hyperactivity [Not Recovered/Not Resolved]
  - Somnolence [Not Recovered/Not Resolved]
  - Muscular weakness [Not Recovered/Not Resolved]
  - Vomiting [Recovered/Resolved]
